FAERS Safety Report 10190540 (Version 1)
Quarter: 2014Q2

REPORT INFORMATION
  Report Type: Report from Study
  Country: CA (occurrence: CA)
  Receive Date: 20140523
  Receipt Date: 20140523
  Transmission Date: 20141212
  Serious: Yes (Other)
  Sender: FDA-Public Use
  Company Number: CA-ROCHE-1405618

PATIENT
  Sex: Male

DRUGS (8)
  1. RITUXAN [Suspect]
     Indication: RHEUMATOID ARTHRITIS
     Dosage: FREQUENCY: DAY 1, 15?PREVIOUS DOSE OF RITUXAN: 11/DEC/2013
     Route: 042
     Dates: start: 20130430
  2. ACTEMRA [Suspect]
     Indication: PRODUCT USED FOR UNKNOWN INDICATION
     Route: 065
  3. DIPHENHYDRAMINE HYDROCHLORIDE [Concomitant]
     Indication: PREMEDICATION
     Route: 048
  4. ACETAMINOPHEN [Concomitant]
     Indication: PREMEDICATION
     Route: 048
  5. METFORMIN [Concomitant]
  6. METHOTREXATE [Concomitant]
  7. TYLENOL #3 (CANADA) [Concomitant]
  8. NAPROXEN [Concomitant]
     Dosage: AS REQUIRED
     Route: 065

REACTIONS (1)
  - Blood glucose increased [Recovered/Resolved]
